FAERS Safety Report 9144146 (Version 2)
Quarter: 2016Q2

REPORT INFORMATION
  Report Type: Report from Study
  Country: BR (occurrence: BR)
  Receive Date: 20130306
  Receipt Date: 20160525
  Transmission Date: 20160815
  Serious: Yes (Other)
  Sender: FDA-Public Use
  Company Number: BR-ROCHE-1196969

PATIENT
  Age: 73 Year
  Sex: Female
  Weight: 60 kg

DRUGS (16)
  1. FORASEQ (BRAZIL) [Suspect]
     Active Substance: BUDESONIDE\FORMOTEROL FUMARATE
     Indication: BRONCHITIS
  2. XOLAIR [Suspect]
     Active Substance: OMALIZUMAB
     Indication: ASTHMA
     Route: 065
     Dates: start: 20110201
  3. PRELONE [Concomitant]
     Active Substance: PREDNISOLONE
  4. LIPITOR [Concomitant]
     Active Substance: ATORVASTATIN CALCIUM
     Indication: BLOOD CHOLESTEROL INCREASED
     Route: 048
  5. OSTEONUTRI [Concomitant]
  6. DIOVAN HCT [Concomitant]
     Active Substance: HYDROCHLOROTHIAZIDE\VALSARTAN
     Indication: HYPERTENSION
     Route: 048
  7. TAPAZOL [Concomitant]
     Indication: THYROID DISORDER
     Route: 048
  8. DEPURAN [Concomitant]
     Indication: VITAMIN SUPPLEMENTATION
     Route: 048
  9. XOLAIR [Suspect]
     Active Substance: OMALIZUMAB
     Route: 058
     Dates: start: 20130515
  10. FORASEQ (BRAZIL) [Suspect]
     Active Substance: BUDESONIDE\FORMOTEROL FUMARATE
     Indication: ASTHMA
     Dosage: INHALATION 12/400 MCG AT A DOSE OF TWO CAPSULES EACH TREATMENT
     Route: 065
  11. ALLEGRA [Concomitant]
     Active Substance: FEXOFENADINE HYDROCHLORIDE
     Indication: HYPERSENSITIVITY
     Route: 048
  12. BENADRYL (BRAZIL) [Concomitant]
     Active Substance: DIPHENHYDRAMINE HYDROCHLORIDE
     Indication: HYPERSENSITIVITY
     Route: 065
  13. DEPURA [Concomitant]
     Active Substance: CHOLECALCIFEROL
  14. SODIUM HYDROXIDE. [Concomitant]
     Active Substance: SODIUM HYDROXIDE
  15. BEROTEC [Concomitant]
     Active Substance: FENOTEROL HYDROBROMIDE
  16. ALENDRONATE [Concomitant]
     Active Substance: ALENDRONATE SODIUM
     Indication: OSTEOPOROSIS
     Route: 048

REACTIONS (15)
  - Pruritus [Unknown]
  - Hypotension [Recovering/Resolving]
  - Oropharyngeal pain [Recovering/Resolving]
  - House dust allergy [Unknown]
  - Tinnitus [Unknown]
  - Dyspnoea [Recovering/Resolving]
  - Renal vein occlusion [Recovering/Resolving]
  - Asthma [Recovering/Resolving]
  - Renal disorder [Recovering/Resolving]
  - Head discomfort [Unknown]
  - Pruritus generalised [Unknown]
  - Wheezing [Recovering/Resolving]
  - Deafness [Not Recovered/Not Resolved]
  - Mycotic allergy [Unknown]
  - Productive cough [Recovering/Resolving]

NARRATIVE: CASE EVENT DATE: 201211
